FAERS Safety Report 10254905 (Version 2)
Quarter: 2014Q2

REPORT INFORMATION
  Report Type: Spontaneous
  Country: DE (occurrence: DE)
  Receive Date: 20140624
  Receipt Date: 20140624
  Transmission Date: 20141212
  Serious: Yes (Other)
  Sender: FDA-Public Use
  Company Number: DE-EISAI INC-E2080-00731-SPO-DE

PATIENT
  Age: 17 Year
  Sex: Female
  Weight: 54 kg

DRUGS (4)
  1. INOVELON [Suspect]
     Indication: EPILEPSY
     Dosage: UNKNOWN
     Route: 048
     Dates: end: 2014
  2. INOVELON [Interacting]
     Dosage: REDUCED (DOSE UNKNOWN)
     Route: 048
     Dates: start: 2014
  3. ORFIRIL [Interacting]
     Indication: EPILEPSY
     Dosage: UNKNOWN
     Route: 048
  4. VIMPAT [Concomitant]
     Indication: EPILEPSY
     Dosage: UNKNOWN
     Route: 048

REACTIONS (2)
  - Electrocardiogram QT shortened [Not Recovered/Not Resolved]
  - Drug interaction [Not Recovered/Not Resolved]
